FAERS Safety Report 20302092 (Version 1)
Quarter: 2022Q1

REPORT INFORMATION
  Report Type: Other
  Country: MX (occurrence: None)
  Receive Date: 20220105
  Receipt Date: 20220105
  Transmission Date: 20220423
  Serious: Yes (Other)
  Sender: FDA-Public Use
  Company Number: MX-Saptalis Pharmaceuticals,LLC-000161

PATIENT
  Age: 11 Year
  Sex: Female

DRUGS (1)
  1. METFORMIN [Suspect]
     Active Substance: METFORMIN HYDROCHLORIDE
     Indication: Overweight
     Dosage: 500 MG WAS ADMINISTERED TO PED ON FASTING
     Route: 048

REACTIONS (2)
  - Drug level increased [Unknown]
  - Lactic acidosis [Unknown]
